FAERS Safety Report 16444061 (Version 1)
Quarter: 2019Q2

REPORT INFORMATION
  Report Type: Spontaneous
  Country: US (occurrence: US)
  Receive Date: 20190508
  Receipt Date: 20190508
  Transmission Date: 20190711
  Serious: Yes (Hospitalization)
  Sender: FDA-Public Use
  Company Number: None

PATIENT
  Age: 81 Year
  Sex: Female

DRUGS (1)
  1. TRAMADOL TABLET [Suspect]
     Active Substance: TRAMADOL
     Dates: start: 201903

REACTIONS (3)
  - Visual impairment [None]
  - Large intestinal obstruction [None]
  - Dizziness [None]

NARRATIVE: CASE EVENT DATE: 20190501
